FAERS Safety Report 6714264-2 (Version None)
Quarter: 2010Q2

REPORT INFORMATION
  Report Type: 
  Country: None (occurrence: None)
  Receive Date: 20100506
  Receipt Date: 20090806
  Transmission Date: 20101027
  Serious: No
  Sender: FDA-Public Use
  Company Number: US-BAUSCH-2009BL003975

PATIENT
  Age: 74 Year
  Sex: Female

DRUGS (7)
  1. LOTEMAX [Suspect]
     Indication: EYE IRRITATION
     Route: 047
     Dates: start: 20090626, end: 20090716
  2. LOTEMAX [Suspect]
     Route: 047
     Dates: start: 20090717, end: 20090727
  3. LOTEMAX [Suspect]
     Route: 047
     Dates: start: 20090728, end: 20090805
  4. VYTORIN [Concomitant]
  5. VERAPAMIL [Concomitant]
  6. VITAMINS [Concomitant]
  7. ASPIRIN [Concomitant]

REACTIONS (5)
  - EYE IRRITATION [None]
  - EYE PAIN [None]
  - FOREIGN BODY SENSATION IN EYES [None]
  - OCULAR HYPERAEMIA [None]
  - VISION BLURRED [None]
